FAERS Safety Report 23141184 (Version 2)
Quarter: 2023Q4

REPORT INFORMATION
  Report Type: Spontaneous
  Country: JP (occurrence: JP)
  Receive Date: 20231103
  Receipt Date: 20231120
  Transmission Date: 20240110
  Serious: No
  Sender: FDA-Public Use
  Company Number: JP-KYOWAKIRIN-2023KK016860

PATIENT
  Age: 74 Year
  Sex: Male

DRUGS (1)
  1. DARBEPOETIN ALFA [Suspect]
     Active Substance: DARBEPOETIN ALFA
     Indication: Nephrogenic anaemia
     Dosage: 10 MICROGRAM, QWK
     Route: 065

REACTIONS (3)
  - Off label use [Unknown]
  - Off label use [Unknown]
  - Off label use [Unknown]
